FAERS Safety Report 22025498 (Version 1)
Quarter: 2023Q1

REPORT INFORMATION
  Report Type: Spontaneous
  Country: US (occurrence: None)
  Receive Date: 20230223
  Receipt Date: 20230223
  Transmission Date: 20230418
  Serious: No
  Sender: FDA-Public Use
  Company Number: US-ROCHE-3124335

PATIENT
  Sex: Female

DRUGS (7)
  1. XOLAIR [Suspect]
     Active Substance: OMALIZUMAB
     Indication: Diabetic complication
     Dosage: STRENGTH: 150 MG, DIVIDED INTO 2 DOSES AND GIVEN AT TWO DIFFERENT INJECTION SITES.
     Route: 058
  2. ATENOLOL [Concomitant]
     Active Substance: ATENOLOL
  3. CYCLOSPORINE [Concomitant]
     Active Substance: CYCLOSPORINE
  4. LORATADINE [Concomitant]
     Active Substance: LORATADINE
  5. RELPAX [Concomitant]
     Active Substance: ELETRIPTAN HYDROBROMIDE
  6. SYNTHROID [Concomitant]
     Active Substance: LEVOTHYROXINE SODIUM
     Route: 048
  7. BETAMETHASONE DIPROPIONATE [Concomitant]
     Active Substance: BETAMETHASONE DIPROPIONATE

REACTIONS (2)
  - Drug ineffective [Unknown]
  - No adverse event [Unknown]
